FAERS Safety Report 14211257 (Version 2)
Quarter: 2017Q4

REPORT INFORMATION
  Report Type: Spontaneous
  Country: LB (occurrence: JO)
  Receive Date: 20171121
  Receipt Date: 20171130
  Transmission Date: 20180321
  Serious: Yes (Death)
  Sender: FDA-Public Use
  Company Number: LB-ABBVIE-17P-093-2168036-00

PATIENT
  Age: 25 Year
  Sex: Female

DRUGS (1)
  1. VENETOCLAX. [Suspect]
     Active Substance: VENETOCLAX
     Indication: DIFFUSE LARGE B-CELL LYMPHOMA
     Dosage: RAMP UP DOSE
     Route: 048

REACTIONS (2)
  - Death [Fatal]
  - Off label use [Unknown]
